FAERS Safety Report 17388750 (Version 2)
Quarter: 2020Q1

REPORT INFORMATION
  Report Type: Spontaneous
  Country: US (occurrence: US)
  Receive Date: 20200207
  Receipt Date: 20200207
  Transmission Date: 20200409
  Serious: Yes (Other)
  Sender: FDA-Public Use
  Company Number: US-GILEAD-2020-0449460

PATIENT
  Age: 53 Year
  Sex: Male

DRUGS (1)
  1. TRUVADA [Suspect]
     Active Substance: EMTRICITABINE\TENOFOVIR DISOPROXIL FUMARATE
     Indication: PROPHYLAXIS AGAINST HIV INFECTION
     Dosage: UNK
     Route: 065
     Dates: end: 2019

REACTIONS (7)
  - Femur fracture [Unknown]
  - Hip fracture [Unknown]
  - Fall [Unknown]
  - CD4 lymphocytes abnormal [Unknown]
  - Pain [Unknown]
  - Osteonecrosis [Unknown]
  - Seizure [Unknown]
